FAERS Safety Report 8795655 (Version 1)
Quarter: 2012Q4

REPORT INFORMATION
  Report Type: Report from Study
  Country: DE (occurrence: DE)
  Receive Date: 20120919
  Receipt Date: 20120919
  Transmission Date: 20130627
  Serious: Yes (Hospitalization)
  Sender: FDA-Public Use
  Company Number: DE-TEVA-359376USA

PATIENT
  Age: 72 Year
  Sex: Male
  Weight: 70 kg

DRUGS (5)
  1. TREANDA [Suspect]
     Indication: MALIGNANT LYMPHOID NEOPLASM
     Dosage: cyclic
     Route: 042
     Dates: start: 20100104
  2. RITUXIMAB [Suspect]
     Indication: MALIGNANT LYMPHOID NEOPLASM
     Dosage: cyclic
     Route: 042
     Dates: start: 20100104
  3. CHLORAMBUCIL [Concomitant]
     Dates: start: 201101
  4. FLUDARABINE PHOSPHATE [Concomitant]
     Dates: start: 201103
  5. ASPIRIN [Concomitant]
     Dates: start: 2008

REACTIONS (3)
  - Sensation of pressure [Recovered/Resolved]
  - Vertigo [Recovered/Resolved]
  - Sudden hearing loss [Recovered/Resolved]
